FAERS Safety Report 8436203-9 (Version None)
Quarter: 2012Q2

REPORT INFORMATION
  Report Type: 
  Country: None (occurrence: None)
  Receive Date: 20120614
  Receipt Date: 20120606
  Transmission Date: 20120825
  Serious: Yes (Hospitalization, Other)
  Sender: FDA-Public Use
  Company Number: DK-NOVOPROD-347420

PATIENT
  Age: 66 Year
  Sex: Male
  Weight: 116 kg

DRUGS (5)
  1. METFORMIN HCL [Concomitant]
     Indication: DIABETES MELLITUS
     Dosage: UNK
     Route: 048
     Dates: start: 20080821
  2. VICTOZA [Suspect]
     Dosage: 0.6 MG, QD
     Route: 058
     Dates: start: 20090922, end: 20111209
  3. SIMVASTATIN [Concomitant]
     Dosage: UNK
     Route: 048
     Dates: start: 20101110, end: 20111212
  4. CENTYL MED KALIUMKLORID [Concomitant]
     Indication: HYPERTENSION
     Dosage: UNK
     Route: 048
     Dates: start: 20090203
  5. WARFARIN SODIUM [Concomitant]
     Indication: DEEP VEIN THROMBOSIS
     Dosage: UNK
     Route: 048
     Dates: start: 20110412, end: 20111121

REACTIONS (4)
  - PANCREATITIS CHRONIC [None]
  - PANCREATIC PSEUDOCYST [None]
  - WEIGHT DECREASED [None]
  - PANCREATITIS ACUTE [None]
